FAERS Safety Report 16719681 (Version 1)
Quarter: 2019Q3

REPORT INFORMATION
  Report Type: Spontaneous
  Country: CN (occurrence: CN)
  Receive Date: 20190820
  Receipt Date: 20190820
  Transmission Date: 20191005
  Serious: Yes (Hospitalization, Other)
  Sender: FDA-Public Use
  Company Number: CN-ACTELION-A-CH2019-194153

PATIENT
  Age: 9 Month
  Sex: Male

DRUGS (7)
  1. PIPERACILLIN AND TAZOBACTAM [Suspect]
     Active Substance: PIPERACILLIN SODIUM\TAZOBACTAM SODIUM
     Indication: PRODUCT USED FOR UNKNOWN INDICATION
     Route: 065
  2. METHYLPREDNISOLONE. [Concomitant]
     Active Substance: METHYLPREDNISOLONE
     Dosage: 2 MG/KG, QD
     Route: 042
  3. MEROPENEM. [Concomitant]
     Active Substance: MEROPENEM
     Dosage: 20 MG/KG, TID
  4. PREDNISONE. [Concomitant]
     Active Substance: PREDNISONE
  5. BOSENTAN. [Suspect]
     Active Substance: BOSENTAN
     Indication: PULMONARY HYPERTENSION
     Route: 048
  6. IMMUNOGLOBULIN [IMMUNOGLOBULIN HUMAN NORMAL] [Concomitant]
     Active Substance: HUMAN IMMUNOGLOBULIN G
     Dosage: 0.5 G/KG FOR 4 DAYS
  7. AZITHROMYCIN ANHYDROUS. [Concomitant]
     Active Substance: AZITHROMYCIN ANHYDROUS
     Dosage: 10 MG/KG, QD

REACTIONS (22)
  - Jaundice [Unknown]
  - Fulminant type 1 diabetes mellitus [Unknown]
  - Aspartate aminotransferase increased [Unknown]
  - Eosinophilia [Unknown]
  - Swelling face [Unknown]
  - Coagulopathy [Unknown]
  - Pigmentation disorder [Unknown]
  - Weight increased [Unknown]
  - Lymphadenopathy [Unknown]
  - Acute hepatic failure [Unknown]
  - Alanine aminotransferase increased [Unknown]
  - Pruritus [Unknown]
  - Rash maculo-papular [Unknown]
  - Drug reaction with eosinophilia and systemic symptoms [Unknown]
  - Concomitant disease aggravated [Unknown]
  - Pyrexia [Unknown]
  - Leukocytosis [Unknown]
  - Blood glucose fluctuation [Unknown]
  - Parotid gland enlargement [Unknown]
  - Hepatomegaly [Unknown]
  - Dermatitis exfoliative [Unknown]
  - Blood bilirubin increased [Unknown]
